FAERS Safety Report 16192070 (Version 7)
Quarter: 2020Q4

REPORT INFORMATION
  Report Type: Report from Study
  Country: CA (occurrence: CA)
  Receive Date: 20190412
  Receipt Date: 20201111
  Transmission Date: 20210113
  Serious: Yes (Other)
  Sender: FDA-Public Use
  Company Number: PHHY2019CA043442

PATIENT
  Age: 60 Year
  Sex: Female

DRUGS (14)
  1. COSENTYX [Suspect]
     Active Substance: SECUKINUMAB
     Dosage: 300 MG, QMO
     Route: 058
     Dates: start: 20190312
  2. COSENTYX [Suspect]
     Active Substance: SECUKINUMAB
     Dosage: 300 MG, QMO
     Route: 058
     Dates: start: 20190419
  3. LEFLUNOMIDE. [Concomitant]
     Active Substance: LEFLUNOMIDE
     Indication: PRODUCT USED FOR UNKNOWN INDICATION
     Route: 065
  4. HUMIRA [Concomitant]
     Active Substance: ADALIMUMAB
     Indication: PRODUCT USED FOR UNKNOWN INDICATION
     Route: 065
  5. COSENTYX [Suspect]
     Active Substance: SECUKINUMAB
     Dosage: 300 MG, Q2W
     Route: 058
     Dates: start: 20200603
  6. REMICADE [Concomitant]
     Active Substance: INFLIXIMAB
     Indication: PRODUCT USED FOR UNKNOWN INDICATION
     Route: 065
  7. METHOTREXATE. [Concomitant]
     Active Substance: METHOTREXATE
     Indication: PRODUCT USED FOR UNKNOWN INDICATION
     Route: 058
  8. NAPROXEN. [Concomitant]
     Active Substance: NAPROXEN
     Indication: PRODUCT USED FOR UNKNOWN INDICATION
     Route: 065
  9. COSENTYX [Suspect]
     Active Substance: SECUKINUMAB
     Indication: PSORIATIC ARTHROPATHY
     Dosage: 300 MG, Q2W
     Route: 058
     Dates: start: 20190219
  10. COSENTYX [Suspect]
     Active Substance: SECUKINUMAB
     Dosage: 300 MG, Q2W
     Route: 058
     Dates: start: 20200311
  11. IBUPROFEN. [Concomitant]
     Active Substance: IBUPROFEN
     Indication: PRODUCT USED FOR UNKNOWN INDICATION
     Route: 065
  12. COSENTYX [Suspect]
     Active Substance: SECUKINUMAB
     Dosage: UNK
     Route: 058
     Dates: start: 20201022
  13. COSENTYX [Suspect]
     Active Substance: SECUKINUMAB
     Dosage: 300 MG, QMO
     Route: 058
     Dates: start: 20190319
  14. SULFASALAZINE. [Concomitant]
     Active Substance: SULFASALAZINE
     Indication: PRODUCT USED FOR UNKNOWN INDICATION
     Route: 065

REACTIONS (17)
  - Malaise [Unknown]
  - Dizziness [Unknown]
  - Swelling face [Unknown]
  - Arthralgia [Unknown]
  - Inappropriate schedule of product administration [Unknown]
  - Pain [Recovering/Resolving]
  - Kidney infection [Unknown]
  - Fibromyalgia [Unknown]
  - Neck pain [Unknown]
  - Psoriasis [Unknown]
  - Cystitis [Unknown]
  - Fatigue [Unknown]
  - Oropharyngeal pain [Unknown]
  - Pain in extremity [Unknown]
  - White blood cell count decreased [Unknown]
  - Peripheral swelling [Recovering/Resolving]
  - Memory impairment [Unknown]

NARRATIVE: CASE EVENT DATE: 20190222
